FAERS Safety Report 24323299 (Version 4)
Quarter: 2025Q1

REPORT INFORMATION
  Report Type: Spontaneous
  Country: US (occurrence: US)
  Receive Date: 20240916
  Receipt Date: 20250304
  Transmission Date: 20250408
  Serious: Yes (Disabling, Other)
  Sender: AMGEN
  Company Number: US-AMGEN-USASP2024181208

PATIENT
  Age: 68 Year
  Sex: Female

DRUGS (13)
  1. TEPEZZA [Suspect]
     Active Substance: TEPROTUMUMAB-TRBW
     Indication: Endocrine ophthalmopathy
     Dosage: 20 MILLIGRAM/KILOGRAM, Q3WK
     Route: 042
     Dates: start: 202108
  2. TEPEZZA [Suspect]
     Active Substance: TEPROTUMUMAB-TRBW
     Indication: Graves^ disease
     Dosage: 20 MILLIGRAM/KILOGRAM, Q3WK (SECOND DOSE)
     Route: 042
  3. TEPEZZA [Suspect]
     Active Substance: TEPROTUMUMAB-TRBW
     Dosage: 20 MILLIGRAM/KILOGRAM, Q3WK (FOURTH DOSE)
     Route: 040
  4. TEPEZZA [Suspect]
     Active Substance: TEPROTUMUMAB-TRBW
     Dosage: 20 MILLIGRAM/KILOGRAM, Q3WK (SEVENTH DOSE)
     Route: 042
     Dates: end: 202201
  5. NAPROSYN [Concomitant]
     Active Substance: NAPROXEN
     Dosage: 500 MILLIGRAM, BID (FOR 2 WEEKS WITH FOOD)
     Route: 048
     Dates: start: 20211124
  6. METHIMAZOLE [Concomitant]
     Active Substance: METHIMAZOLE
     Dosage: 5 MILLIGRAM, QD (TAKE 0.5 TABLET)
     Route: 048
  7. METHIMAZOLE [Concomitant]
     Active Substance: METHIMAZOLE
     Dosage: 10 MILLIGRAM, QD
     Route: 048
  8. TIMOPTIC [Concomitant]
     Active Substance: TIMOLOL MALEATE
     Dosage: 1 DROP, QOD (EVERY OTHER DAY)
     Route: 047
     Dates: start: 20220113
  9. VITAMIN D [Concomitant]
     Active Substance: VITAMIN D NOS
     Route: 065
  10. SELENIUM [Concomitant]
     Active Substance: SELENIUM
     Route: 065
  11. RESTASIS [Concomitant]
     Active Substance: CYCLOSPORINE
     Route: 065
  12. TIMOLOL MALEATE [Concomitant]
     Active Substance: TIMOLOL MALEATE
     Route: 065
  13. CAFFEINE [Concomitant]
     Active Substance: CAFFEINE
     Route: 065

REACTIONS (27)
  - Endocrine ophthalmopathy [Unknown]
  - Graves^ disease [Unknown]
  - Deafness neurosensory [Not Recovered/Not Resolved]
  - Pain [Unknown]
  - Emotional distress [Unknown]
  - Anxiety [Unknown]
  - Quality of life decreased [Unknown]
  - Discomfort [Unknown]
  - Tinnitus [Not Recovered/Not Resolved]
  - Malaise [Recovered/Resolved]
  - Product use complaint [Unknown]
  - Pain in jaw [Unknown]
  - Sleep apnoea syndrome [Unknown]
  - Facial pain [Unknown]
  - Ear pain [Unknown]
  - Temporomandibular pain and dysfunction syndrome [Unknown]
  - Vitamin D deficiency [Unknown]
  - Selenium deficiency [Unknown]
  - Glomerular filtration rate decreased [Unknown]
  - Blood thyroid stimulating hormone increased [Unknown]
  - Thyroxine free decreased [Unknown]
  - Anti-thyroid antibody increased [Unknown]
  - Thyroid stimulating immunoglobulin increased [Unknown]
  - Blood selenium increased [Unknown]
  - Pain in extremity [Recovered/Resolved]
  - Stenosis [Unknown]
  - Ear discomfort [Unknown]

NARRATIVE: CASE EVENT DATE: 20220327
